FAERS Safety Report 19206555 (Version 1)
Quarter: 2021Q2

REPORT INFORMATION
  Report Type: Spontaneous
  Country: BE (occurrence: BE)
  Receive Date: 20210503
  Receipt Date: 20210503
  Transmission Date: 20210717
  Serious: Yes (Death, Hospitalization, Other)
  Sender: FDA-Public Use
  Company Number: BE-ABBVIE-21K-013-3886256-00

PATIENT
  Sex: Male
  Weight: 67.7 kg

DRUGS (4)
  1. IMBRUVICA [Suspect]
     Active Substance: IBRUTINIB
     Route: 048
     Dates: start: 20180504
  2. BURINEX [Concomitant]
     Active Substance: BUMETANIDE
     Indication: CARDIAC VALVE DISEASE
     Route: 048
     Dates: end: 20201119
  3. ALDACTONE [Concomitant]
     Active Substance: SPIRONOLACTONE
     Indication: CARDIAC VALVE DISEASE
     Dates: end: 20201119
  4. IMBRUVICA [Suspect]
     Active Substance: IBRUTINIB
     Indication: MANTLE CELL LYMPHOMA
     Route: 048
     Dates: start: 20170116

REACTIONS (3)
  - Urinary retention [Not Recovered/Not Resolved]
  - Fluid overload [Not Recovered/Not Resolved]
  - COVID-19 [Fatal]
